FAERS Safety Report 4304805-7 (Version None)
Quarter: 2004Q1

REPORT INFORMATION
  Report Type: 
  Country: None (occurrence: None)
  Receive Date: 20040226
  Receipt Date: 20031216
  Transmission Date: 20041129
  Serious: Yes (Other)
  Sender: FDA-Public Use
  Company Number: US-GLAXOSMITHKLINE-A0443357A

PATIENT
  Age: 22 Year
  Sex: Female
  Weight: 54.5 kg

DRUGS (5)
  1. WELLBUTRIN [Suspect]
     Indication: DEPRESSION
     Dosage: 450MG PER DAY
     Route: 048
  2. ADDERALL [Concomitant]
     Dosage: 10MG PER DAY
     Dates: start: 20030901
  3. FOCALIN [Concomitant]
     Dates: start: 20030201
  4. ATIVAN [Concomitant]
     Indication: ANXIETY
     Dates: start: 20020201
  5. ORTHO TRI-CYCLEN [Concomitant]
     Dates: start: 20021201

REACTIONS (2)
  - FATIGUE [None]
  - GRAND MAL CONVULSION [None]
